FAERS Safety Report 17962794 (Version 1)
Quarter: 2020Q2

REPORT INFORMATION
  Report Type: Spontaneous
  Country: JP (occurrence: JP)
  Receive Date: 20200630
  Receipt Date: 20200630
  Transmission Date: 20200714
  Serious: Yes (Other)
  Sender: FDA-Public Use
  Company Number: JP-KYOWAKIRIN-2019BKK017939

PATIENT

DRUGS (5)
  1. ZOLADEX [Concomitant]
     Active Substance: GOSERELIN ACETATE
     Indication: BREAST CANCER RECURRENT
     Dosage: UNK
     Route: 065
     Dates: end: 202005
  2. FARESTON [Suspect]
     Active Substance: TOREMIFENE CITRATE
     Indication: METASTASES TO BONE
  3. ENDOXAN [CYCLOPHOSPHAMIDE MONOHYDRATE] [Concomitant]
     Active Substance: CYCLOPHOSPHAMIDE
     Indication: BREAST CANCER RECURRENT
     Dosage: 50 MG / DAY
     Route: 065
     Dates: start: 20190629, end: 20191106
  4. ENDOXAN [CYCLOPHOSPHAMIDE MONOHYDRATE] [Concomitant]
     Active Substance: CYCLOPHOSPHAMIDE
     Indication: METASTASES TO BONE
  5. FARESTON [Suspect]
     Active Substance: TOREMIFENE CITRATE
     Indication: BREAST CANCER RECURRENT
     Dosage: 120 MG / DAY
     Route: 048
     Dates: start: 20190629, end: 20191106

REACTIONS (5)
  - Eczema [Recovering/Resolving]
  - Liver function test increased [Recovered/Resolved]
  - Erythema [Recovering/Resolving]
  - Oedema peripheral [Recovered/Resolved]
  - Tenderness [Recovered/Resolved]

NARRATIVE: CASE EVENT DATE: 20191106
